FAERS Safety Report 7654248-3 (Version None)
Quarter: 2011Q3

REPORT INFORMATION
  Report Type: 
  Country: None (occurrence: None)
  Receive Date: 20110803
  Receipt Date: 20110725
  Transmission Date: 20111222
  Serious: Yes (Hospitalization, Other)
  Sender: FDA-Public Use
  Company Number: US-BAYER-2011-015817

PATIENT
  Age: 43 Year
  Sex: Female
  Weight: 45 kg

DRUGS (7)
  1. REBIF [Concomitant]
  2. DROSPIRENONE AND ETHINYL ESTRADIOL [Suspect]
     Route: 048
  3. FERROUS SULFATE TAB [Concomitant]
     Dosage: 325 MG, UNK
  4. YASMIN [Suspect]
     Route: 048
  5. CALCIUM +VIT D [Concomitant]
  6. YAZ [Suspect]
     Indication: PREMENSTRUAL SYNDROME
     Dosage: UNK
     Route: 048
     Dates: start: 20070801, end: 20091201
  7. VITAMINS NOS [Concomitant]

REACTIONS (5)
  - FEAR [None]
  - MENTAL DISORDER [None]
  - CEREBROVASCULAR ACCIDENT [None]
  - PAIN [None]
  - ANXIETY [None]
